FAERS Safety Report 8067135-6 (Version None)
Quarter: 2012Q1

REPORT INFORMATION
  Report Type: 
  Country: None (occurrence: None)
  Receive Date: 20120124
  Receipt Date: 20120123
  Transmission Date: 20120608
  Serious: Yes (Other)
  Sender: FDA-Public Use
  Company Number: US-BAYER-2012-007148

PATIENT
  Age: 62 Year
  Sex: Male

DRUGS (14)
  1. BETASERON [Suspect]
     Indication: PRODUCT USED FOR UNKNOWN INDICATION
     Dosage: 0.25 MG, UNK
     Route: 058
  2. COD LIVER [Concomitant]
  3. CALCIUM [Concomitant]
     Dosage: 500 UNK, UNK
  4. COCONUT OIL [Concomitant]
  5. MULTIVITAMIN PREPARATION + MINERAL SUPPLEMENT [Concomitant]
  6. LISINOPRIL [Concomitant]
     Dosage: 20 MG, UNK
  7. CRANBERRY [Concomitant]
     Dosage: 1000 MG, UNK
  8. BACLOFEN [Concomitant]
     Dosage: 10 MG, UNK
  9. TRAMADOL HCL [Concomitant]
     Dosage: 100 MG, UNK
  10. ACETAMINOPHEN [Concomitant]
     Dosage: 325 MG, UNK
  11. TIZANIDINE HCL [Concomitant]
     Dosage: 4 MG, UNK
  12. ESTRACE [Concomitant]
     Dosage: 0.5 MG, UNK
  13. ANTIFUNGAL [Concomitant]
  14. PROBIOTICA [Concomitant]

REACTIONS (2)
  - DECUBITUS ULCER [None]
  - CYSTITIS [None]
